FAERS Safety Report 21296311 (Version 1)
Quarter: 2022Q3

REPORT INFORMATION
  Report Type: Spontaneous
  Country: US (occurrence: US)
  Receive Date: 20220906
  Receipt Date: 20220906
  Transmission Date: 20221027
  Serious: Yes (Hospitalization)
  Sender: FDA-Public Use
  Company Number: US-STRIDES ARCOLAB LIMITED-2022SP011137

PATIENT
  Age: 84 Year
  Sex: Male

DRUGS (1)
  1. PREDNISOLONE [Suspect]
     Active Substance: PREDNISOLONE
     Indication: Arthralgia
     Dosage: 10 MILLIGRAM
     Route: 065

REACTIONS (3)
  - Pulmonary embolism [Unknown]
  - Achromobacter infection [Recovered/Resolved]
  - Subcutaneous abscess [Recovered/Resolved]
